FAERS Safety Report 8715110 (Version 2)
Quarter: 2013Q2

REPORT INFORMATION
  Report Type: Spontaneous
  Country: JP (occurrence: JP)
  Receive Date: 20120809
  Receipt Date: 20130619
  Transmission Date: 20140414
  Serious: Yes (Other)
  Sender: FDA-Public Use
  Company Number: JP-ALLERGAN-1210743US

PATIENT
  Age: 81 Year
  Sex: Male

DRUGS (1)
  1. LUMIGAN [Suspect]
     Indication: NORMAL TENSION GLAUCOMA
     Dosage: 1 GTT OS, QD
     Route: 047
     Dates: start: 20110715

REACTIONS (3)
  - Prostate cancer [Not Recovered/Not Resolved]
  - Punctate keratitis [Recovered/Resolved]
  - Visual field defect [Unknown]
